FAERS Safety Report 20629666 (Version 3)
Quarter: 2022Q2

REPORT INFORMATION
  Report Type: Report from Study
  Country: US (occurrence: None)
  Receive Date: 20220323
  Receipt Date: 20220524
  Transmission Date: 20220721
  Serious: Yes (Hospitalization, Other)
  Sender: FDA-Public Use
  Company Number: US-ROCHE-1744595

PATIENT
  Age: 57 Year
  Sex: Female
  Weight: 67.27 kg

DRUGS (2)
  1. BEVACIZUMAB [Suspect]
     Active Substance: BEVACIZUMAB
     Indication: Ovarian epithelial cancer
     Dosage: LAST DOSE ADMINISTERED ON 15/NOV/2016
     Route: 042
     Dates: start: 20090319
  2. ATIVAN [Concomitant]
     Active Substance: LORAZEPAM

REACTIONS (4)
  - Proteinuria [Not Recovered/Not Resolved]
  - Non-cardiac chest pain [Recovering/Resolving]
  - Hypothyroidism [Not Recovered/Not Resolved]
  - Abdominal pain upper [Recovered/Resolved]

NARRATIVE: CASE EVENT DATE: 20120719
